FAERS Safety Report 5309768-3 (Version None)
Quarter: 2007Q2

REPORT INFORMATION
  Report Type: 
  Country: None (occurrence: None)
  Receive Date: 20070427
  Receipt Date: 20070209
  Transmission Date: 20071010
  Serious: Yes (Hospitalization)
  Sender: FDA-Public Use
  Company Number: US-GLAXOSMITHKLINE-A0639049A

PATIENT
  Age: 59 Year
  Sex: Male

DRUGS (3)
  1. ZOFRAN [Suspect]
     Indication: PROPHYLAXIS OF NAUSEA AND VOMITING
     Route: 048
     Dates: start: 20061201
  2. UNKNOWN [Suspect]
     Indication: PROPHYLAXIS OF NAUSEA AND VOMITING
  3. CHEMOTHERAPY [Suspect]
     Indication: PANCREATIC CARCINOMA

REACTIONS (2)
  - DEPRESSION [None]
  - DRUG INEFFECTIVE [None]
